FAERS Safety Report 8832188 (Version 7)
Quarter: 2014Q4

REPORT INFORMATION
  Report Type: Spontaneous
  Country: US (occurrence: US)
  Receive Date: 20121009
  Receipt Date: 20141009
  Transmission Date: 20150529
  Serious: Yes (Hospitalization, Disabling, Other)
  Sender: FDA-Public Use
  Company Number: US-009507513-1205USA00965

PATIENT
  Sex: Female
  Weight: 55.33 kg

DRUGS (5)
  1. FOSAMAX [Suspect]
     Active Substance: ALENDRONATE SODIUM
     Indication: OSTEOPOROSIS
     Dosage: 70 MG, UNK
     Route: 048
     Dates: start: 20020919, end: 20100330
  2. FOSAMAX PLUS D [Suspect]
     Active Substance: ALENDRONATE SODIUM\CHOLECALCIFEROL
     Indication: OSTEOPOROSIS
     Dosage: UNK
     Route: 048
     Dates: end: 201003
  3. ALENDRONATE SODIUM. [Suspect]
     Active Substance: ALENDRONATE SODIUM
     Indication: OSTEOPOROSIS
     Dosage: 70 MG, QW
     Route: 048
     Dates: start: 200904, end: 200912
  4. ALENDRONATE SODIUM. [Suspect]
     Active Substance: ALENDRONATE SODIUM
     Indication: OSTEOPOROSIS
     Dosage: 70 MG, UNK
     Route: 048
     Dates: start: 200902, end: 200903
  5. FOSAMAX [Suspect]
     Active Substance: ALENDRONATE SODIUM
     Indication: OSTEOPOROSIS
     Dosage: UNK
     Route: 048
     Dates: start: 1995, end: 201003

REACTIONS (29)
  - Intraductal proliferative breast lesion [Unknown]
  - Biopsy breast [Unknown]
  - Scoliosis [Unknown]
  - Road traffic accident [Recovered/Resolved]
  - Scoliosis [Unknown]
  - Rib fracture [Unknown]
  - Breast cancer [Unknown]
  - Fracture delayed union [Not Recovered/Not Resolved]
  - Aortic arteriosclerosis [Unknown]
  - Gingival abscess [Unknown]
  - Knee operation [Unknown]
  - Osteopenia [Unknown]
  - Gastrooesophageal reflux disease [Unknown]
  - Femur fracture [Not Recovered/Not Resolved]
  - Intramedullary rod insertion [Unknown]
  - Osteoarthritis [Unknown]
  - Bone disorder [Unknown]
  - Tooth fracture [Unknown]
  - Endodontic procedure [Recovered/Resolved]
  - Endodontic procedure [Unknown]
  - Contusion [Recovered/Resolved]
  - Symphysiolysis [Unknown]
  - Low turnover osteopathy [Not Recovered/Not Resolved]
  - Invasive ductal breast carcinoma [Unknown]
  - Female sterilisation [Unknown]
  - Limb asymmetry [Recovered/Resolved]
  - Gingivitis [Recovering/Resolving]
  - Anaemia postoperative [Recovered/Resolved]
  - Gingival recession [Recovering/Resolving]

NARRATIVE: CASE EVENT DATE: 1999
